FAERS Safety Report 7932664-X (Version None)
Quarter: 2011Q4

REPORT INFORMATION
  Report Type: 
  Country: None (occurrence: None)
  Receive Date: 20111122
  Receipt Date: 20111118
  Transmission Date: 20120403
  Serious: Yes (Other)
  Sender: FDA-Public Use
  Company Number: GR-JNJFOC-20111108599

PATIENT
  Age: 63 Year
  Sex: Male

DRUGS (4)
  1. SIMPONI [Suspect]
     Indication: RHEUMATOID ARTHRITIS
     Route: 058
  2. ANTIHYPERTENSIVE [Concomitant]
     Indication: CONGESTIVE CARDIOMYOPATHY
  3. METHOTREXATE [Concomitant]
     Indication: RHEUMATOID ARTHRITIS
  4. CORTISONE ACETATE [Concomitant]

REACTIONS (2)
  - ORTHOPNOEA [None]
  - CARDIAC DISORDER [None]
